FAERS Safety Report 4786582-9 (Version None)
Quarter: 2005Q3

REPORT INFORMATION
  Report Type: 
  Country: None (occurrence: None)
  Receive Date: 20050927
  Receipt Date: 20050701
  Transmission Date: 20060218
  Serious: No
  Sender: FDA-Public Use
  Company Number: USA0506101695

PATIENT
  Sex: Female
  Weight: 45 kg

DRUGS (3)
  1. STRATTERA [Suspect]
     Indication: ATTENTION DEFICIT/HYPERACTIVITY DISORDER
     Dosage: 10 MG/L IN THE MORNING
     Dates: start: 20050629
  2. CYMBALTA [Suspect]
     Indication: ANXIETY
  3. ATIVAN [Concomitant]

REACTIONS (6)
  - DELUSIONAL DISORDER, PERSECUTORY TYPE [None]
  - FATIGUE [None]
  - INSOMNIA [None]
  - MENTAL STATUS CHANGES [None]
  - NERVOUSNESS [None]
  - WEIGHT DECREASED [None]
